FAERS Safety Report 7088350-4 (Version None)
Quarter: 2010Q4

REPORT INFORMATION
  Report Type: 
  Country: None (occurrence: None)
  Receive Date: 20101108
  Receipt Date: 20101025
  Transmission Date: 20110411
  Serious: Yes (Other)
  Sender: FDA-Public Use
  Company Number: US-ELI_LILLY_AND_COMPANY-US201010006211

PATIENT
  Sex: Male

DRUGS (4)
  1. CIALIS [Suspect]
     Indication: ERECTILE DYSFUNCTION
     Dosage: 5 MG, UNK
     Dates: end: 20100711
  2. CIALIS [Suspect]
     Dosage: 10 MG, UNK
     Dates: end: 20100711
  3. VIGAMOX [Concomitant]
  4. PREDNISOLONE ACETATE [Concomitant]

REACTIONS (5)
  - BLINDNESS [None]
  - CORNEAL SCAR [None]
  - CYANOPSIA [None]
  - INJURY CORNEAL [None]
  - VISUAL ACUITY REDUCED [None]
